FAERS Safety Report 17396055 (Version 1)
Quarter: 2020Q1

REPORT INFORMATION
  Report Type: Spontaneous
  Country: US (occurrence: US)
  Receive Date: 20200207
  Receipt Date: 20200207
  Transmission Date: 20200409
  Serious: Yes (Other)
  Sender: FDA-Public Use
  Company Number: None

PATIENT
  Age: 55 Year
  Sex: Female
  Weight: 56.7 kg

DRUGS (6)
  1. KADCYLA [Concomitant]
     Active Substance: ADO-TRASTUZUMAB EMTANSINE
  2. VITAMIN D [Concomitant]
     Active Substance: VITAMIN D NOS
  3. CALCIUM [Concomitant]
     Active Substance: CALCIUM
  4. FASLODEX [Concomitant]
     Active Substance: FULVESTRANT
  5. KADCYLA [Suspect]
     Active Substance: ADO-TRASTUZUMAB EMTANSINE
     Indication: BREAST CANCER
     Dosage: ?          QUANTITY:500 INFUSION;OTHER FREQUENCY:ONCE EVERY 3 WEEKS;OTHER ROUTE:INFUSION?
     Dates: start: 20191213
  6. BIOTIN [Concomitant]
     Active Substance: BIOTIN

REACTIONS (3)
  - Diplopia [None]
  - Eye irritation [None]
  - Dry eye [None]

NARRATIVE: CASE EVENT DATE: 20200110
